FAERS Safety Report 24773338 (Version 1)
Quarter: 2024Q4

REPORT INFORMATION
  Report Type: Spontaneous
  Country: US (occurrence: US)
  Receive Date: 20241225
  Receipt Date: 20241225
  Transmission Date: 20250115
  Serious: Yes (Other)
  Sender: INSMED
  Company Number: US-INSMED, INC.-2024-05112-US

PATIENT
  Age: 69 Year
  Sex: Female

DRUGS (6)
  1. ARIKAYCE [Suspect]
     Active Substance: AMIKACIN
     Indication: Atypical mycobacterial infection
     Dosage: UNK, UNK
     Route: 055
     Dates: start: 2019
  2. ARIKAYCE [Suspect]
     Active Substance: AMIKACIN
     Indication: Mycobacterium avium complex infection
  3. AZITHROMYCIN [Suspect]
     Active Substance: AZITHROMYCIN
     Indication: Atypical mycobacterial infection
     Dosage: UNK, UNK
     Route: 065
  4. AZITHROMYCIN [Suspect]
     Active Substance: AZITHROMYCIN
     Indication: Mycobacterium avium complex infection
  5. CLOFAZIMINE [Suspect]
     Active Substance: CLOFAZIMINE
     Indication: Atypical mycobacterial infection
     Dosage: UNK, UNK
     Route: 065
  6. CLOFAZIMINE [Suspect]
     Active Substance: CLOFAZIMINE
     Indication: Mycobacterium avium complex infection

REACTIONS (7)
  - Acute abdomen [Unknown]
  - Volvulus [Unknown]
  - Pulmonary embolism [Unknown]
  - Enterocutaneous fistula [Not Recovered/Not Resolved]
  - Aspergillus infection [Unknown]
  - Pneumonia [Unknown]
  - Drug resistance [Unknown]

NARRATIVE: CASE EVENT DATE: 20200701
